FAERS Safety Report 12901185 (Version 3)
Quarter: 2016Q4

REPORT INFORMATION
  Report Type: Spontaneous
  Country: US (occurrence: US)
  Receive Date: 20161101
  Receipt Date: 20161209
  Transmission Date: 20170207
  Serious: Yes (Hospitalization)
  Sender: FDA-Public Use
  Company Number: US-ALLERGAN-1674363US

PATIENT
  Age: 14 Year
  Sex: Male
  Weight: 55.9 kg

DRUGS (6)
  1. MOTRIN [Suspect]
     Active Substance: IBUPROFEN
     Dosage: UNK, UNKNOWN
     Route: 065
     Dates: start: 20161023, end: 20161026
  2. NORCO [Suspect]
     Active Substance: ACETAMINOPHEN\HYDROCODONE BITARTRATE
     Indication: PAIN
     Dosage: 5MG/325 MG
     Dates: start: 20161003, end: 20161006
  3. NORCO [Suspect]
     Active Substance: ACETAMINOPHEN\HYDROCODONE BITARTRATE
     Dosage: UNK
     Dates: start: 20161105, end: 20161109
  4. NORCO [Suspect]
     Active Substance: ACETAMINOPHEN\HYDROCODONE BITARTRATE
     Dosage: 5MG/325 MG
     Dates: start: 20161023, end: 20161026
  5. MOTRIN [Suspect]
     Active Substance: IBUPROFEN
     Dosage: UNK
     Dates: start: 20161105, end: 20161109
  6. MOTRIN [Suspect]
     Active Substance: IBUPROFEN
     Indication: PAIN
     Dosage: UNK
     Dates: start: 20161003, end: 20161006

REACTIONS (2)
  - Drug ineffective [Unknown]
  - Sickle cell anaemia with crisis [Recovering/Resolving]

NARRATIVE: CASE EVENT DATE: 20161109
